FAERS Safety Report 26119484 (Version 1)
Quarter: 2025Q4

REPORT INFORMATION
  Report Type: Spontaneous
  Country: US (occurrence: US)
  Receive Date: 20251204
  Receipt Date: 20251204
  Transmission Date: 20260118
  Serious: Yes (Other)
  Sender: DR REDDYS
  Company Number: US-DRL-USA-USA/2025/11/018059

PATIENT
  Age: 73 Year
  Sex: Female

DRUGS (6)
  1. CLONIDINE [Suspect]
     Active Substance: CLONIDINE
     Indication: Hypertension
     Dosage: SERIAL NUMBER: TWDPYRAVJ5GO
     Dates: start: 20251114
  2. ATORVASTATIN [Concomitant]
     Active Substance: ATORVASTATIN
     Indication: Blood cholesterol
  3. HYDRALAZINE [Concomitant]
     Active Substance: HYDRALAZINE HYDROCHLORIDE
     Indication: Blood pressure measurement
     Dosage: AS AN EMERGENCY BLOOD PRESSURE MEDICATION (AS NEEDED);
  4. CARVEDILOL [Concomitant]
     Active Substance: CARVEDILOL
     Indication: Product used for unknown indication
     Dosage: TWICE DAILY AT 8 AM AND 8 PM AS A PREVENTATIVE;
  5. FELODIPINE [Concomitant]
     Active Substance: FELODIPINE
     Indication: Product used for unknown indication
     Dosage: DAILY AT NOON
  6. TRANDOLAPRIL [Concomitant]
     Active Substance: TRANDOLAPRIL
     Indication: Product used for unknown indication
     Dosage: DAILY AT NOON

REACTIONS (6)
  - Blood pressure increased [Unknown]
  - Application site pruritus [Not Recovered/Not Resolved]
  - Application site burn [Not Recovered/Not Resolved]
  - Application site extravasation [Not Recovered/Not Resolved]
  - Wrong technique in product usage process [Unknown]
  - Product adhesion issue [Unknown]

NARRATIVE: CASE EVENT DATE: 20251115
